FAERS Safety Report 25418566 (Version 1)
Quarter: 2025Q2

REPORT INFORMATION
  Report Type: Spontaneous
  Country: US (occurrence: None)
  Receive Date: 20250610
  Receipt Date: 20250610
  Transmission Date: 20250716
  Serious: No
  Sender: FDA-CTU
  Company Number: None

PATIENT

DRUGS (1)
  1. OPSUMIT [Suspect]
     Active Substance: MACITENTAN

REACTIONS (6)
  - Dyspnoea [None]
  - Headache [None]
  - Rhinorrhoea [None]
  - Abdominal discomfort [None]
  - Depression [None]
  - Blood pressure decreased [None]
